FAERS Safety Report 8558715-X (Version None)
Quarter: 2012Q3

REPORT INFORMATION
  Report Type: 
  Country: None (occurrence: None)
  Receive Date: 20120801
  Receipt Date: 20120723
  Transmission Date: 20120928
  Serious: Yes (Hospitalization)
  Sender: FDA-Public Use
  Company Number: FR-FRI-1000030916

PATIENT
  Sex: Male

DRUGS (4)
  1. OMEPRAZOLE [Concomitant]
     Indication: GASTRIC ULCER
     Route: 048
  2. ACAMPROSATE [Suspect]
     Dosage: 6 DF
     Route: 048
     Dates: start: 20110301, end: 20120301
  3. AMLODIPINE [Concomitant]
     Route: 048
  4. ZOPICLONE [Concomitant]
     Route: 048

REACTIONS (2)
  - ANGIODYSPLASIA [None]
  - ANAEMIA [None]
